FAERS Safety Report 14205508 (Version 1)
Quarter: 2017Q4

REPORT INFORMATION
  Report Type: Spontaneous
  Country: US (occurrence: US)
  Receive Date: 20171120
  Receipt Date: 20171120
  Transmission Date: 20180321
  Serious: Yes (Other)
  Sender: FDA-Public Use
  Company Number: US-LANNETT COMPANY, INC.-US-2017LAN001199

PATIENT

DRUGS (2)
  1. PANTOPRAZOLE SODIUM. [Suspect]
     Active Substance: PANTOPRAZOLE SODIUM
     Dosage: 40 MG, ONCE IN A WHILE
     Route: 065
     Dates: start: 2016
  2. PANTOPRAZOLE SODIUM. [Suspect]
     Active Substance: PANTOPRAZOLE SODIUM
     Indication: GASTROOESOPHAGEAL REFLUX DISEASE
     Dosage: 40 MG, TAKEN ONCE IN A WHILE
     Route: 065

REACTIONS (9)
  - Cholelithiasis [Unknown]
  - Upper limb fracture [Unknown]
  - Diffuse idiopathic skeletal hyperostosis [Not Recovered/Not Resolved]
  - Sinusitis [Unknown]
  - Carpal tunnel syndrome [Unknown]
  - Psoriasis [Not Recovered/Not Resolved]
  - Musculoskeletal pain [Not Recovered/Not Resolved]
  - Weight decreased [Recovered/Resolved]
  - Meniscus injury [Unknown]

NARRATIVE: CASE EVENT DATE: 2006
